FAERS Safety Report 8266934-5 (Version None)
Quarter: 2012Q2

REPORT INFORMATION
  Report Type: 
  Country: None (occurrence: None)
  Receive Date: 20120404
  Receipt Date: 20120404
  Transmission Date: 20120825
  Serious: Yes (Hospitalization)
  Sender: FDA-Public Use
  Company Number: None

PATIENT
  Age: 68 Year
  Sex: Female
  Weight: 65.5 kg

DRUGS (8)
  1. NAPROXEN (ALEVE) [Suspect]
     Indication: ARTHRALGIA
     Dosage: 440MG BID PO RECENT
     Route: 048
  2. VIT D3 [Concomitant]
  3. WELLBUTRIN [Concomitant]
  4. VANCOMYCIN [Suspect]
     Dosage: 1.5 GMS BID IV RECENT
     Route: 042
  5. PULMICORT [Concomitant]
  6. VITAMIN B-12 [Concomitant]
  7. TRIAMTERENE AND HYDROCHLOROTHIAZIDE [Suspect]
     Indication: HYPERTENSION
     Dosage: 37.5/25 ONE TAB PO QHS CHRONIC
     Route: 048
  8. SIMVASTATIN [Concomitant]

REACTIONS (5)
  - NEPHROLITHIASIS [None]
  - DEHYDRATION [None]
  - FLUID INTAKE REDUCED [None]
  - RENAL FAILURE ACUTE [None]
  - TOXICITY TO VARIOUS AGENTS [None]
